FAERS Safety Report 18326986 (Version 2)
Quarter: 2020Q4

REPORT INFORMATION
  Report Type: Spontaneous
  Country: GB (occurrence: GB)
  Receive Date: 20200930
  Receipt Date: 20201006
  Transmission Date: 20210113
  Serious: Yes (Death, Hospitalization)
  Sender: FDA-Public Use
  Company Number: GB-TEVA-2020-GB-1832941

PATIENT
  Age: 50 Year
  Sex: Female

DRUGS (5)
  1. METHYLPREDNISOLONE. [Suspect]
     Active Substance: METHYLPREDNISOLONE
     Indication: IMMUNOSUPPRESSANT DRUG THERAPY
     Dosage: INDUCTION IMMUNOSUPPRESSIVE THERAPY
     Route: 065
  2. PREDNISOLONE. [Suspect]
     Active Substance: PREDNISOLONE
     Indication: IMMUNOSUPPRESSANT DRUG THERAPY
     Dosage: MAINTENANCE THERAPY
     Route: 065
  3. BASILIXIMAB [Suspect]
     Active Substance: BASILIXIMAB
     Indication: IMMUNOSUPPRESSANT DRUG THERAPY
     Dosage: INDUCTION IMMUNOSUPPRESSIVE THERAPY
     Route: 065
  4. TACROLIMUS. [Suspect]
     Active Substance: TACROLIMUS
     Indication: IMMUNOSUPPRESSANT DRUG THERAPY
     Dosage: MAINTENANCE THERAPY
     Route: 065
  5. MYCOPHENOLATE MOFETIL. [Suspect]
     Active Substance: MYCOPHENOLATE MOFETIL
     Indication: IMMUNOSUPPRESSANT DRUG THERAPY
     Dosage: MAINTENANCE THERAPY
     Route: 065

REACTIONS (7)
  - Escherichia infection [Fatal]
  - Shock [Fatal]
  - Tachypnoea [Fatal]
  - Necrotising fasciitis [Fatal]
  - Hypotension [Fatal]
  - Urine output decreased [Fatal]
  - Atrial fibrillation [Fatal]
